FAERS Safety Report 21555537 (Version 1)
Quarter: 2022Q4

REPORT INFORMATION
  Report Type: Spontaneous
  Country: CA (occurrence: CA)
  Receive Date: 20221104
  Receipt Date: 20221104
  Transmission Date: 20230113
  Serious: Yes (Other)
  Sender: FDA-Public Use
  Company Number: CA-INCYTE CORPORATION-2022IN010521

PATIENT

DRUGS (1)
  1. PEMAZYRE [Suspect]
     Active Substance: PEMIGATINIB
     Indication: Squamous cell carcinoma of head and neck
     Dosage: 13.5 MILLIGRAM (14 DAYS ON AND 7 DAYS OFF)
     Route: 048
     Dates: start: 20220827, end: 20220926

REACTIONS (3)
  - Squamous cell carcinoma of head and neck [Unknown]
  - Disease progression [Unknown]
  - Off label use [Unknown]

NARRATIVE: CASE EVENT DATE: 20220827
